FAERS Safety Report 6412622-7 (Version None)
Quarter: 2009Q4

REPORT INFORMATION
  Report Type: 
  Country: None (occurrence: None)
  Receive Date: 20091023
  Receipt Date: 20091014
  Transmission Date: 20100525
  Serious: Yes (Other)
  Sender: FDA-Public Use
  Company Number: PHHY2009CA15803

PATIENT
  Sex: Male

DRUGS (2)
  1. ZOMETA [Suspect]
     Indication: PROSTATE CANCER
     Dosage: 3 MG, QMO
     Route: 042
     Dates: start: 20081001
  2. ZOMETA [Suspect]
     Dosage: 4 MG, ONCE/SINGLE
     Route: 042
     Dates: start: 20091010

REACTIONS (7)
  - BLOOD CREATININE INCREASED [None]
  - BLOOD POTASSIUM INCREASED [None]
  - BLOOD UREA INCREASED [None]
  - GLOMERULAR FILTRATION RATE DECREASED [None]
  - HEART RATE DECREASED [None]
  - OVERDOSE [None]
  - PROSTATIC SPECIFIC ANTIGEN INCREASED [None]
